FAERS Safety Report 9275288 (Version 1)
Quarter: 2013Q2

REPORT INFORMATION
  Report Type: Spontaneous
  Country: US (occurrence: US)
  Receive Date: 20130506
  Receipt Date: 20130506
  Transmission Date: 20140414
  Serious: Yes (Other)
  Sender: FDA-Public Use
  Company Number: US-RB-053074-13

PATIENT
  Sex: Male

DRUGS (4)
  1. SUBOXONE FILM [Suspect]
     Route: 060
     Dates: start: 201103
  2. SUBOXONE FILM [Suspect]
     Dosage: SUBOXONE FILM
     Route: 060
  3. SUBOXONE FILM [Suspect]
     Dosage: SUBOXONE FILM; 16 MG IN THE MORNING, 8 AT NIGHT
     Route: 060
  4. SUBOXONE FILM [Suspect]
     Indication: DRUG WITHDRAWAL SYNDROME
     Dosage: SUBOXONE FILM; 16 MG IN THE MORNING, 4 MG AT NIGHT
     Route: 060

REACTIONS (2)
  - Joint swelling [Recovering/Resolving]
  - Thrombosis [Unknown]
